FAERS Safety Report 6833850-2 (Version None)
Quarter: 2010Q3

REPORT INFORMATION
  Report Type: 
  Country: None (occurrence: None)
  Receive Date: 20100712
  Receipt Date: 20070404
  Transmission Date: 20110219
  Serious: No
  Sender: FDA-Public Use
  Company Number: US-PFIZER INC-2007027573

PATIENT
  Sex: Female
  Weight: 78.47 kg

DRUGS (3)
  1. CHANTIX [Suspect]
     Indication: SMOKING CESSATION THERAPY
     Dates: start: 20070301
  2. ANTIHYPERTENSIVES [Concomitant]
  3. DRUG, UNSPECIFIED [Concomitant]

REACTIONS (3)
  - ABNORMAL DREAMS [None]
  - FATIGUE [None]
  - MIDDLE INSOMNIA [None]
